FAERS Safety Report 9901302 (Version 3)
Quarter: 2014Q4

REPORT INFORMATION
  Report Type: Spontaneous
  Country: US (occurrence: US)
  Receive Date: 20140217
  Receipt Date: 20141204
  Transmission Date: 20150529
  Serious: Yes (Hospitalization, Other)
  Sender: FDA-Public Use
  Company Number: US-BAYER-2014-024395

PATIENT
  Age: 33 Year
  Sex: Female

DRUGS (5)
  1. XANAX [Concomitant]
     Active Substance: ALPRAZOLAM
     Dosage: UNK UNK, PRN
     Route: 048
  2. KEFLEX [Concomitant]
     Active Substance: CEPHALEXIN
     Indication: BREAST CYST
     Route: 048
  3. FERROUS SULFATE [Concomitant]
     Active Substance: FERROUS SULFATE\FERROUS SULFATE, DRIED
     Indication: MENORRHAGIA
  4. VIIBRYD [Concomitant]
     Active Substance: VILAZODONE HYDROCHLORIDE
     Dosage: 50 MG, UNK
     Route: 048
  5. MIRENA [Suspect]
     Active Substance: LEVONORGESTREL
     Dosage: 20 MCG/24HR, CONT
     Route: 015
     Dates: start: 20100118, end: 20130128

REACTIONS (9)
  - Injury [None]
  - Scar [None]
  - Device failure [None]
  - Medical device discomfort [None]
  - Procedural pain [None]
  - Device issue [None]
  - Menorrhagia [None]
  - Uterine perforation [None]
  - Pain [None]

NARRATIVE: CASE EVENT DATE: 20130128
